FAERS Safety Report 8998912 (Version 6)
Quarter: 2013Q3

REPORT INFORMATION
  Report Type: Spontaneous
  Country: GB (occurrence: GB)
  Receive Date: 20130103
  Receipt Date: 20130930
  Transmission Date: 20140515
  Serious: Yes (Life-Threatening, Hospitalization)
  Sender: FDA-Public Use
  Company Number: GB-PFIZER INC-2012333941

PATIENT
  Age: 73 Year
  Sex: Female

DRUGS (13)
  1. TAZOCIN [Suspect]
     Indication: PNEUMONIA
     Dosage: UNK G, 3X/DAY
     Route: 042
     Dates: start: 20110211, end: 20110215
  2. CIPROFLOXACIN [Suspect]
     Indication: PNEUMONIA
     Dosage: 250 MG, 2X/DAY
     Route: 048
     Dates: start: 20110215, end: 20110303
  3. OMEPRAZOLE [Suspect]
     Dosage: UNK
     Route: 065
  4. PIPERACILLIN/TAZOBACTAM [Suspect]
     Indication: PERITONITIS BACTERIAL
     Dosage: 4.5 G, 3X/DAY
     Route: 042
     Dates: end: 20110504
  5. ADCAL-D3 [Concomitant]
     Dosage: UNK
     Route: 065
  6. BENZYDAMINE [Concomitant]
     Dosage: UNK
     Route: 065
  7. FOLIC ACID [Concomitant]
     Dosage: UNK
     Route: 065
  8. FUROSEMIDE [Concomitant]
     Dosage: UNK
     Route: 065
  9. LACTULOSE [Concomitant]
     Route: 065
  10. MULTIVITAMINS [Concomitant]
     Route: 065
  11. PANCREATIN [Concomitant]
     Route: 065
  12. PHYTOMENADIONE [Concomitant]
     Route: 065
  13. SPIRONOLACTONE [Concomitant]
     Route: 065

REACTIONS (5)
  - Clostridium difficile infection [Recovered/Resolved]
  - Diarrhoea [Recovered/Resolved]
  - Megacolon [Unknown]
  - Frequent bowel movements [Recovered/Resolved]
  - Intestinal dilatation [Unknown]
